FAERS Safety Report 21638855 (Version 1)
Quarter: 2022Q4

REPORT INFORMATION
  Report Type: Report from Study
  Country: US (occurrence: US)
  Receive Date: 20221124
  Receipt Date: 20221124
  Transmission Date: 20230112
  Serious: No
  Sender: FDA-Public Use
  Company Number: US-ABBVIE-22K-163-4235788-00

PATIENT
  Age: 46 Year
  Sex: Female

DRUGS (3)
  1. SKYRIZI [Suspect]
     Active Substance: RISANKIZUMAB-RZAA
     Indication: Psoriasis
     Dosage: WEEK ZERO
     Route: 058
     Dates: start: 20210923, end: 20210923
  2. SKYRIZI [Suspect]
     Active Substance: RISANKIZUMAB-RZAA
     Dosage: WEEK FOUR
     Route: 058
     Dates: start: 20211028, end: 20211028
  3. SKYRIZI [Suspect]
     Active Substance: RISANKIZUMAB-RZAA
     Route: 058
     Dates: start: 2022

REACTIONS (6)
  - COVID-19 [Recovered/Resolved]
  - Productive cough [Unknown]
  - Pulmonary pain [Unknown]
  - Psoriasis [Not Recovered/Not Resolved]
  - General physical health deterioration [Unknown]
  - Pain [Unknown]

NARRATIVE: CASE EVENT DATE: 20211111
